FAERS Safety Report 5074078-9 (Version None)
Quarter: 2006Q3

REPORT INFORMATION
  Report Type: 
  Country: None (occurrence: None)
  Receive Date: 20060808
  Receipt Date: 20060322
  Transmission Date: 20061208
  Serious: No
  Sender: FDA-Public Use
  Company Number: US-AMGEN-US173355

PATIENT
  Sex: Female
  Weight: 93 kg

DRUGS (20)
  1. EPOGEN [Suspect]
     Indication: DIALYSIS
     Route: 042
  2. ZYRTEC [Concomitant]
  3. ZOLOFT [Concomitant]
  4. SINGULAIR [Concomitant]
  5. PROCARDIA [Concomitant]
  6. PREDNISONE [Concomitant]
  7. NEXIUM [Concomitant]
  8. MINOXIDIL [Concomitant]
  9. MEPROBAMATE [Concomitant]
  10. LIPITOR [Concomitant]
  11. VISTARIL [Concomitant]
  12. FOSRENOL [Concomitant]
  13. ENALAPRIL MALEATE [Concomitant]
  14. ATENOLOL [Concomitant]
  15. ATACAND [Concomitant]
  16. ALLOPURINOL [Concomitant]
  17. FLONASE [Concomitant]
  18. VITAMINS [Concomitant]
  19. L-CARNITINE [Concomitant]
     Dates: start: 20051201
  20. IRON [Concomitant]

REACTIONS (1)
  - THERAPEUTIC RESPONSE DECREASED [None]
